FAERS Safety Report 6328219-3 (Version None)
Quarter: 2009Q3

REPORT INFORMATION
  Report Type: 
  Country: None (occurrence: None)
  Receive Date: 20090825
  Receipt Date: 20081216
  Transmission Date: 20100115
  Serious: No
  Sender: FDA-Public Use
  Company Number: US-ABBOTT-08P-163-0493343-00

PATIENT
  Sex: Female

DRUGS (6)
  1. SYNTHROID [Suspect]
     Indication: HYPOTHYROIDISM
     Dosage: MONDAY THROUGH FRIDAY
     Dates: start: 20080601
  2. SYNTHROID [Suspect]
     Dosage: SATURDAY AND SUNDAY
     Dates: start: 20080601
  3. ATENOLOL [Concomitant]
     Indication: HYPERTENSION
     Dates: start: 19900101
  4. FOSAMAX [Concomitant]
     Indication: OSTEOPOROSIS
  5. LOVASTATIN [Concomitant]
     Indication: BLOOD CHOLESTEROL
     Dates: start: 20080601
  6. LOTENSIN [Concomitant]
     Indication: HYPERTENSION

REACTIONS (1)
  - WEIGHT INCREASED [None]
